FAERS Safety Report 14845072 (Version 1)
Quarter: 2018Q2

REPORT INFORMATION
  Report Type: Spontaneous
  Country: ES (occurrence: ES)
  Receive Date: 20180504
  Receipt Date: 20180504
  Transmission Date: 20180711
  Serious: Yes (Hospitalization)
  Sender: FDA-Public Use
  Company Number: ES-TEVA-2018-ES-872245

PATIENT
  Age: 84 Year
  Sex: Male

DRUGS (6)
  1. TAMSULOSINA (2751A) [Concomitant]
     Dosage: 0.4 MG 1 TIME A DAY
     Route: 048
     Dates: start: 20170112
  2. OMEPRAZOL (2141A) [Concomitant]
     Active Substance: OMEPRAZOLE
     Dosage: 20 MG 1 TIME A DAY
     Route: 048
     Dates: start: 20170112
  3. DABIGATRAN (8258A) [Concomitant]
     Indication: ATRIAL FIBRILLATION
     Dosage: 110 MG 2 TIMES A DAY
     Route: 048
     Dates: start: 20170112
  4. LEVETIRACETAM (1167A) [Suspect]
     Active Substance: LEVETIRACETAM
     Indication: GENERALISED TONIC-CLONIC SEIZURE
     Dosage: 1000 MG 2 TIMES A DAY 1000 MG 2 TIMES A DAY
     Route: 042
     Dates: start: 20171201, end: 20171202
  5. CIPROFLOXACINO (2049A) [Concomitant]
     Active Substance: CIPROFLOXACIN
     Dosage: 250 MG 2 TIMES A DAY
     Route: 048
     Dates: start: 20171129, end: 20171203
  6. ATORVASTATINA (7400A) [Concomitant]
     Active Substance: ATORVASTATIN
     Dosage: 40 MG 1 TIME A DAY
     Route: 048
     Dates: start: 20170112

REACTIONS (2)
  - Confusional state [Recovered/Resolved]
  - Agitation [Recovered/Resolved]

NARRATIVE: CASE EVENT DATE: 20171201
